FAERS Safety Report 19382556 (Version 1)
Quarter: 2021Q2

REPORT INFORMATION
  Report Type: Spontaneous
  Country: US (occurrence: US)
  Receive Date: 20210607
  Receipt Date: 20210607
  Transmission Date: 20210717
  Serious: No
  Sender: FDA-Public Use
  Company Number: US-XTTRIUM LABORATORIES, INC-2112424

PATIENT
  Sex: Male

DRUGS (1)
  1. SCRUB CARE EXIDINE ?4 CHG [Suspect]
     Active Substance: CHLORHEXIDINE GLUCONATE
     Route: 003

REACTIONS (2)
  - Oedema genital [Recovered/Resolved]
  - Penile discomfort [Recovered/Resolved]
